FAERS Safety Report 12089556 (Version 1)
Quarter: 2016Q1

REPORT INFORMATION
  Report Type: Spontaneous
  Country: US (occurrence: US)
  Receive Date: 20160218
  Receipt Date: 20160218
  Transmission Date: 20160526
  Serious: No
  Sender: FDA-Public Use
  Company Number: US-PFIZER INC-2016087049

PATIENT
  Age: 54 Year
  Sex: Male

DRUGS (1)
  1. SUNITINIB MALATE. [Suspect]
     Active Substance: SUNITINIB MALATE
     Indication: NEOPLASM MALIGNANT
     Dosage: UNK

REACTIONS (4)
  - Disease progression [Unknown]
  - Neoplasm malignant [Unknown]
  - Diarrhoea [Unknown]
  - Fatigue [Unknown]
